FAERS Safety Report 4998603-9 (Version None)
Quarter: 2006Q2

REPORT INFORMATION
  Report Type: 
  Country: None (occurrence: None)
  Receive Date: 20060509
  Receipt Date: 20060327
  Transmission Date: 20061013
  Serious: Yes (Disabling)
  Sender: FDA-Public Use
  Company Number: GXKR2006GB01788

PATIENT
  Age: 48 Year
  Sex: Female
  Weight: 79 kg

DRUGS (2)
  1. ATENOLOL [Suspect]
     Indication: HYPERTENSION
     Dosage: 50 MG, QD; ORAL
     Route: 048
     Dates: start: 20050823, end: 20051016
  2. INDAPAMIDE [Concomitant]

REACTIONS (2)
  - SKIN DISORDER [None]
  - SKIN ULCER [None]
